FAERS Safety Report 8516031-6 (Version None)
Quarter: 2012Q3

REPORT INFORMATION
  Report Type: 
  Country: None (occurrence: None)
  Receive Date: 20120717
  Receipt Date: 20120413
  Transmission Date: 20120928
  Serious: No
  Sender: FDA-Public Use
  Company Number: US-NOVEN-12US004466

PATIENT
  Sex: Male

DRUGS (4)
  1. AMBIEN [Concomitant]
  2. KLONOPIN [Concomitant]
  3. OXYCODONE HCL [Concomitant]
  4. FENTANYL [Suspect]
     Indication: PRODUCT USED FOR UNKNOWN INDICATION
     Dosage: 100 MCG/HR, UNK
     Route: 062
     Dates: start: 20120101

REACTIONS (1)
  - DRUG SCREEN POSITIVE [None]
